FAERS Safety Report 9033042 (Version 2)
Quarter: 2013Q1

REPORT INFORMATION
  Report Type: Spontaneous
  Country: CA (occurrence: None)
  Receive Date: 20130109
  Receipt Date: 20130124
  Transmission Date: 20140127
  Serious: Yes (Hospitalization, Other)
  Sender: FDA-Public Use
  Company Number: 2012AP004450

PATIENT
  Age: 57 Year
  Sex: Female

DRUGS (5)
  1. DILTIAZEM [Suspect]
     Route: 048
  2. BISOPROLOL (BISOPROLOL) [Suspect]
     Route: 048
  3. CANDESARTAN W/HYDROCHLOROTHIAZIDE (CANDESARTAN W/HYDROCHLOROTHIAZIDE) [Suspect]
     Route: 048
  4. SOLPADEINE [Suspect]
     Route: 048
  5. DIMENHYDRINATE (DIMENHYDRINATE) [Suspect]
     Route: 048

REACTIONS (6)
  - Cardiogenic shock [None]
  - Intentional overdose [None]
  - Toxicity to various agents [None]
  - Chest pain [None]
  - Blood pH decreased [None]
  - Laceration [None]
